FAERS Safety Report 4678463-6 (Version None)
Quarter: 2005Q1

REPORT INFORMATION
  Report Type: 
  Country: None (occurrence: None)
  Receive Date: 20041018
  Receipt Date: 20041018
  Transmission Date: 20050727
  Serious: Yes (Other)
  Sender: FDA-Public Use
  Company Number: None

PATIENT
  Sex: Female
  Weight: 54.8852 kg

DRUGS (6)
  1. TRAMADOL HCL [Suspect]
     Indication: LUMBAR SPINAL STENOSIS
     Dosage: 50 MG PO QID
     Route: 048
     Dates: start: 20030910, end: 20030915
  2. TRAMADOL HCL [Suspect]
     Indication: OSTEOARTHRITIS
     Dosage: 50 MG PO QID
     Route: 048
     Dates: start: 20030910, end: 20030915
  3. TRAMADOL HCL [Suspect]
     Indication: LUMBAR SPINAL STENOSIS
     Dosage: 50 MG PO QID
     Route: 048
     Dates: start: 20041003, end: 20041018
  4. TRAMADOL HCL [Suspect]
     Indication: OSTEOARTHRITIS
     Dosage: 50 MG PO QID
     Route: 048
     Dates: start: 20041003, end: 20041018
  5. MS CONTIN [Concomitant]
  6. DARVOCET [Concomitant]

REACTIONS (3)
  - DYSGEUSIA [None]
  - PHARMACEUTICAL PRODUCT COMPLAINT [None]
  - STOMACH DISCOMFORT [None]
